FAERS Safety Report 19200466 (Version 3)
Quarter: 2021Q3

REPORT INFORMATION
  Report Type: Spontaneous
  Country: US (occurrence: US)
  Receive Date: 20210430
  Receipt Date: 20210723
  Transmission Date: 20211014
  Serious: Yes (Other)
  Sender: FDA-Public Use
  Company Number: US-BAYER-2021-129010

PATIENT
  Age: 32 Year
  Sex: Female
  Weight: 69 kg

DRUGS (1)
  1. MIRENA [Suspect]
     Active Substance: LEVONORGESTREL
     Indication: CONTRACEPTION
     Dosage: 20 ?G PER DAY CONTINUOUSLY
     Route: 015
     Dates: start: 20191009, end: 20210420

REACTIONS (7)
  - Device malfunction [None]
  - Device breakage [None]
  - Embedded device [Recovered/Resolved]
  - Abdominal pain [None]
  - Device defective [None]
  - Genital haemorrhage [None]
  - Device difficult to use [None]

NARRATIVE: CASE EVENT DATE: 202011
